FAERS Safety Report 8243915-9 (Version None)
Quarter: 2012Q1

REPORT INFORMATION
  Report Type: 
  Country: None (occurrence: None)
  Receive Date: 20120329
  Receipt Date: 20110801
  Transmission Date: 20120608
  Serious: No
  Sender: FDA-Public Use
  Company Number: US-MYLANLABS-2011S1012358

PATIENT
  Age: 54 Year
  Sex: Female

DRUGS (10)
  1. ESTRADIOL [Suspect]
     Indication: HORMONE REPLACEMENT THERAPY
     Dosage: CHANGED TWICE WEEKLY AT FIRST AND THEN ONCE WEEKLY
     Route: 062
     Dates: start: 20101001
  2. ESTRADIOL [Suspect]
     Dosage: CHANGED TWICE WEEKLY AT FIRST AND THEN ONCE WEEKLY
     Route: 062
     Dates: start: 20101001
  3. FLEXERIL [Concomitant]
     Indication: MUSCLE SPASMS
  4. MAXALT [Concomitant]
     Dosage: MIGRAINE HEADACHE
  5. ESTRADIOL [Suspect]
     Indication: MENOPAUSE
     Dosage: CHANGED TWICE WEEKLY AT FIRST AND THEN ONCE WEEKLY
     Route: 062
     Dates: start: 20101001
  6. IBUPROFEN [Concomitant]
  7. ESTRADIOL [Suspect]
     Dosage: CHANGED TWICE WEEKLY AT FIRST AND THEN ONCE WEEKLY
     Route: 062
     Dates: start: 20101001
  8. LUNESTA [Concomitant]
     Indication: INSOMNIA
  9. ESTRADIOL [Suspect]
     Indication: HOT FLUSH
     Dosage: CHANGED TWICE WEEKLY AT FIRST AND THEN ONCE WEEKLY
     Route: 062
     Dates: start: 20101001
  10. ESTRADIOL [Suspect]
     Dosage: CHANGED TWICE WEEKLY AT FIRST AND THEN ONCE WEEKLY
     Route: 062
     Dates: start: 20101001

REACTIONS (5)
  - APPLICATION SITE BURN [None]
  - APPLICATION SITE RASH [None]
  - APPLICATION SITE IRRITATION [None]
  - APPLICATION SITE ULCER [None]
  - EXCORIATION [None]
